FAERS Safety Report 6234523-X (Version None)
Quarter: 2009Q2

REPORT INFORMATION
  Report Type: 
  Country: None (occurrence: None)
  Receive Date: 20090618
  Receipt Date: 20090220
  Transmission Date: 20091009
  Serious: No
  Sender: FDA-Public Use
  Company Number: US-BRISTOL-MYERS SQUIBB COMPANY-14514707

PATIENT
  Age: 80 Year
  Sex: Female

DRUGS (1)
  1. SINEMET [Suspect]
     Dosage: 1DF=10/100MG 2 TABLETS  LOT#X5648 EXPIRATION DATE 9/2011  LOT#U5540 EXPIRATION DATE 03/2010
     Dates: start: 20060906

REACTIONS (2)
  - BLOOD PRESSURE INCREASED [None]
  - MALAISE [None]
